FAERS Safety Report 20180993 (Version 1)
Quarter: 2021Q4

REPORT INFORMATION
  Report Type: Spontaneous
  Country: US (occurrence: None)
  Receive Date: 20211213
  Receipt Date: 20211213
  Transmission Date: 20220303
  Serious: Yes (Hospitalization)
  Sender: FDA-Public Use
  Company Number: None

PATIENT
  Sex: Female

DRUGS (4)
  1. PIQRAY [Suspect]
     Active Substance: ALPELISIB
     Indication: Breast cancer female
     Dosage: OTHER FREQUENCY : DAYS 1-28 OF 28 DA;?
     Route: 048
  2. IBRANCE [Concomitant]
     Active Substance: PALBOCICLIB
  3. LETROZOLE [Concomitant]
     Active Substance: LETROZOLE
  4. MULTIPLE VIT [Concomitant]

REACTIONS (6)
  - Hypersensitivity [None]
  - Therapy interrupted [None]
  - Rash [None]
  - Throat tightness [None]
  - Therapy cessation [None]
  - Therapy change [None]
